FAERS Safety Report 7912389-7 (Version None)
Quarter: 2011Q4

REPORT INFORMATION
  Report Type: 
  Country: None (occurrence: None)
  Receive Date: 20111114
  Receipt Date: 20111103
  Transmission Date: 20120403
  Serious: Yes (Other)
  Sender: FDA-Public Use
  Company Number: US-BAYER-2010-009278

PATIENT
  Age: 27 Year
  Sex: Female
  Weight: 63 kg

DRUGS (3)
  1. MEPERIDINE HCL [Concomitant]
     Indication: ANALGESIC THERAPY
     Dosage: UNK
     Dates: start: 20080401, end: 20091001
  2. DROSPIRENONE AND ETHINYL ESTRADIOL [Suspect]
     Indication: CONTRACEPTION
     Dosage: UNK
     Dates: start: 20081121, end: 20090601
  3. TRAZODONE HCL [Concomitant]
     Indication: BIPOLAR DISORDER
     Dosage: UNK
     Dates: start: 20080901

REACTIONS (7)
  - CHOLELITHIASIS [None]
  - PAIN [None]
  - ANXIETY [None]
  - CHOLECYSTITIS CHRONIC [None]
  - ABDOMINAL PAIN UPPER [None]
  - INJURY [None]
  - DYSPEPSIA [None]
